FAERS Safety Report 6402788-7 (Version None)
Quarter: 2009Q4

REPORT INFORMATION
  Report Type: 
  Country: None (occurrence: None)
  Receive Date: 20091016
  Receipt Date: 20070207
  Transmission Date: 20100525
  Serious: Yes (Disabling)
  Sender: FDA-Public Use
  Company Number: US-ASTRAZENECA-2006UW10939

PATIENT
  Sex: Male
  Weight: 150 kg

DRUGS (17)
  1. SEROQUEL [Suspect]
     Indication: SCHIZOPHRENIA
     Route: 048
     Dates: start: 20050728
  2. ZYPREXA [Suspect]
  3. PREDNISOLONE [Concomitant]
  4. LAMICTAL [Concomitant]
  5. CARBAMAZEPINE [Concomitant]
  6. NORTRIPTYLINE [Concomitant]
  7. TRAZODONE [Concomitant]
  8. TRILEPTAL [Concomitant]
  9. LORAZEPAM [Concomitant]
  10. GLIPIZIDE [Concomitant]
  11. METFORMIN HYDROCHLORIDE [Concomitant]
  12. GEODON [Concomitant]
  13. ABILIFY [Concomitant]
  14. IBUPROFEN [Concomitant]
  15. KLONOPIN [Concomitant]
  16. PROZAC [Concomitant]
  17. LISINOPRIL [Concomitant]

REACTIONS (1)
  - ILL-DEFINED DISORDER [None]
